FAERS Safety Report 15675879 (Version 2)
Quarter: 2018Q4

REPORT INFORMATION
  Report Type: Report from Study
  Country: JP (occurrence: JP)
  Receive Date: 20181130
  Receipt Date: 20181228
  Transmission Date: 20190205
  Serious: Yes (Hospitalization)
  Sender: FDA-Public Use
  Company Number: JP-PFIZER INC-2018482731

PATIENT
  Age: 33 Year
  Sex: Female
  Weight: 52.3 kg

DRUGS (5)
  1. BOSULIF [Suspect]
     Active Substance: BOSUTINIB MONOHYDRATE
     Dosage: 200 -300MG, 1X/DAY
     Dates: start: 20180513, end: 20180603
  2. BOSULIF [Suspect]
     Active Substance: BOSUTINIB MONOHYDRATE
     Indication: CHRONIC MYELOID LEUKAEMIA
     Dosage: 100 MG, 1X/DAY
     Dates: start: 20180429, end: 20180501
  3. BOSULIF [Suspect]
     Active Substance: BOSUTINIB MONOHYDRATE
     Dosage: 300 MG, 1X/DAY
     Dates: start: 20180604, end: 20180728
  4. BOSULIF [Suspect]
     Active Substance: BOSUTINIB MONOHYDRATE
     Dosage: 200 MG, 1X/DAY
     Dates: start: 20180502, end: 20180512
  5. BOSULIF [Suspect]
     Active Substance: BOSUTINIB MONOHYDRATE
     Dosage: 200 MG, 1X/DAY
     Dates: start: 20180803, end: 20180810

REACTIONS (1)
  - Genital haemorrhage [Recovered/Resolved]

NARRATIVE: CASE EVENT DATE: 20180807
